FAERS Safety Report 8841180 (Version 1)
Quarter: 2012Q4

REPORT INFORMATION
  Report Type: 
  Country: US (occurrence: US)
  Receive Date: 20121015
  Receipt Date: 20121015
  Transmission Date: 20130627
  Serious: No
  Sender: FDA-Public Use
  Company Number: US-PFIZER INC-2012254865

PATIENT
  Age: 11 Year
  Sex: Male
  Weight: 68.03 kg

DRUGS (3)
  1. GEODON [Suspect]
     Indication: ASPERGER^S DISORDER
     Dosage: 40 mg, 2x/day
     Dates: start: 2012
  2. ADVAIR HFA [Concomitant]
     Indication: ASTHMA
     Dosage: 230/21 mcg, 2x/day
     Dates: start: 2011
  3. ZOLOFT [Concomitant]
     Indication: ANXIETY
     Dosage: 150 mg, daily

REACTIONS (4)
  - Off label use [Not Recovered/Not Resolved]
  - Constipation [Not Recovered/Not Resolved]
  - Abdominal discomfort [Not Recovered/Not Resolved]
  - Decreased appetite [Not Recovered/Not Resolved]
